FAERS Safety Report 5821372-7 (Version None)
Quarter: 2008Q3

REPORT INFORMATION
  Report Type: 
  Country: None (occurrence: None)
  Receive Date: 20080724
  Receipt Date: 20080715
  Transmission Date: 20090109
  Serious: Yes (Other)
  Sender: FDA-Public Use
  Company Number: US-JNJFOC-20080704915

PATIENT
  Age: 50 Year
  Sex: Male

DRUGS (1)
  1. GRIFULVIN [Suspect]
     Indication: DERMATOPHYTOSIS
     Route: 048

REACTIONS (3)
  - CUTANEOUS LUPUS ERYTHEMATOSUS [None]
  - PANCYTOPENIA [None]
  - PSORIASIS [None]
